FAERS Safety Report 22089260 (Version 1)
Quarter: 2023Q1

REPORT INFORMATION
  Report Type: Spontaneous
  Country: US (occurrence: US)
  Receive Date: 20230313
  Receipt Date: 20230313
  Transmission Date: 20230418
  Serious: No
  Sender: FDA-Public Use
  Company Number: US-PERRIGO-22US009846

PATIENT
  Age: 69 Year
  Sex: Male
  Weight: 89.342 kg

DRUGS (5)
  1. NICOTINE POLACRILEX [Suspect]
     Active Substance: NICOTINE
     Indication: Smoking cessation therapy
     Dosage: 4 MG, Q 3 HOURS
     Route: 002
     Dates: start: 20220711
  2. OXYCODONE [Concomitant]
     Active Substance: OXYCODONE
     Indication: Arthritis
     Dosage: Q8HRS
     Route: 065
     Dates: start: 1990
  3. TIZANIDINE [Concomitant]
     Active Substance: TIZANIDINE
     Indication: Arthritis
     Dosage: PRN
     Route: 065
  4. VITAMINS NOS [Concomitant]
     Active Substance: VITAMINS
     Indication: Routine health maintenance
     Dosage: 1-2 TIMES A MONTH
     Route: 065
  5. ACETAMINOPHEN\CAFFEINE [Concomitant]
     Active Substance: ACETAMINOPHEN\CAFFEINE
     Indication: Headache
     Dosage: PRN
     Route: 065

REACTIONS (7)
  - Retching [Recovered/Resolved]
  - Eructation [Recovered/Resolved]
  - Throat irritation [Recovering/Resolving]
  - Dyspepsia [Recovering/Resolving]
  - Nausea [Recovered/Resolved]
  - Abdominal discomfort [Recovered/Resolved]
  - Vomiting [Recovered/Resolved]

NARRATIVE: CASE EVENT DATE: 20220711
